FAERS Safety Report 4456636-5 (Version None)
Quarter: 2004Q3

REPORT INFORMATION
  Report Type: 
  Country: None (occurrence: None)
  Receive Date: 20040921
  Receipt Date: 20040908
  Transmission Date: 20050211
  Serious: Yes (Other)
  Sender: FDA-Public Use
  Company Number: 2004051151

PATIENT
  Sex: Female
  Weight: 131.5431 kg

DRUGS (4)
  1. NEURONTIN [Suspect]
     Indication: ILL-DEFINED DISORDER
     Dosage: 1800 MG (600 MG, 3 IN 1 D), ORAL
     Route: 048
  2. NEURONTIN [Suspect]
     Indication: PAIN
     Dosage: 1800 MG (600 MG, 3 IN 1 D), ORAL
     Route: 048
  3. CELECOXIB (CELECOXIB) [Suspect]
     Indication: ARTHRITIS
  4. ROFECOXIB [Concomitant]
     Indication: ARTHRITIS

REACTIONS (5)
  - CROHN'S DISEASE [None]
  - DRUG INEFFECTIVE [None]
  - NERVE DEGENERATION [None]
  - OSTEOSCLEROSIS [None]
  - PAIN [None]
